FAERS Safety Report 10331641 (Version 1)
Quarter: 2014Q3

REPORT INFORMATION
  Report Type: Spontaneous
  Country: US (occurrence: None)
  Receive Date: 20140721
  Receipt Date: 20140721
  Transmission Date: 20150326
  Serious: No
  Sender: FDA-Public Use
  Company Number: None

PATIENT
  Sex: Male

DRUGS (2)
  1. CLOMIPHENE [Suspect]
     Active Substance: CLOMIPHENE
  2. CLOMIPRAMINE HCL [Suspect]
     Active Substance: CLOMIPRAMINE
     Route: 048

REACTIONS (1)
  - Intercepted drug prescribing error [None]
